FAERS Safety Report 23719080 (Version 1)
Quarter: 2024Q2

REPORT INFORMATION
  Report Type: Spontaneous
  Country: IN (occurrence: IN)
  Receive Date: 20240408
  Receipt Date: 20240408
  Transmission Date: 20240715
  Serious: Yes (Other)
  Sender: FDA-Public Use
  Company Number: IN-GE HEALTHCARE-2024CSU003469

PATIENT

DRUGS (1)
  1. CLARISCAN [Suspect]
     Active Substance: GADOTERATE MEGLUMINE
     Indication: Liver scan
     Dosage: 10 ML, TOTAL
     Route: 065

REACTIONS (2)
  - Exophthalmos [Unknown]
  - Tachycardia [Unknown]
